FAERS Safety Report 9642982 (Version 1)
Quarter: 2013Q4

REPORT INFORMATION
  Report Type: Spontaneous
  Country: US (occurrence: US)
  Receive Date: 20131024
  Receipt Date: 20131024
  Transmission Date: 20140711
  Serious: No
  Sender: FDA-Public Use
  Company Number: US-MYLANLABS-2013S1005214

PATIENT
  Age: 60 Year
  Sex: Female
  Weight: 34.02 kg

DRUGS (2)
  1. DIAZEPAM [Suspect]
     Indication: MUSCLE SPASMS
     Route: 048
     Dates: start: 2010
  2. THYROID THERAPY [Concomitant]
     Indication: THYROID DISORDER
     Route: 048

REACTIONS (2)
  - Feeling abnormal [Not Recovered/Not Resolved]
  - Reaction to drug excipients [Not Recovered/Not Resolved]
